FAERS Safety Report 9387522 (Version 6)
Quarter: 2014Q2

REPORT INFORMATION
  Report Type: Spontaneous
  Country: US (occurrence: US)
  Receive Date: 20130708
  Receipt Date: 20140409
  Transmission Date: 20141212
  Serious: Yes (Hospitalization, Disabling, Other)
  Sender: FDA-Public Use
  Company Number: US-009507513-1307USA001897

PATIENT
  Sex: Female
  Weight: 69.84 kg

DRUGS (3)
  1. FOSAMAX [Suspect]
     Indication: OSTEOPENIA
     Dosage: 70 MG, QW
     Route: 048
     Dates: start: 20070718
  2. ALENDRONATE SODIUM [Suspect]
     Dosage: 70 MG, UNK
  3. CALCIUM (UNSPECIFIED) [Concomitant]
     Indication: OSTEOPENIA

REACTIONS (33)
  - Depression [Unknown]
  - Asthma [Unknown]
  - Appendicectomy [Unknown]
  - Hysterectomy [Unknown]
  - Musculoskeletal stiffness [Unknown]
  - Gait disturbance [Unknown]
  - Haemorrhage [Unknown]
  - Hyperlipidaemia [Unknown]
  - Bronchitis [Unknown]
  - Insomnia [Unknown]
  - Ear pain [Unknown]
  - Nail discolouration [Unknown]
  - Limb injury [Unknown]
  - Adverse drug reaction [Unknown]
  - Somnolence [Unknown]
  - Adverse drug reaction [Unknown]
  - Gait disturbance [Unknown]
  - Limb asymmetry [Unknown]
  - Asthenia [Unknown]
  - Gastrooesophageal reflux disease [Unknown]
  - Muscle spasms [Unknown]
  - Back pain [Unknown]
  - Myalgia [Unknown]
  - Abdominal pain upper [Unknown]
  - Abdominal pain upper [Unknown]
  - Femur fracture [Not Recovered/Not Resolved]
  - Intramedullary rod insertion [Unknown]
  - Rib fracture [Unknown]
  - Periodontal operation [Unknown]
  - Fracture delayed union [Unknown]
  - Device failure [Unknown]
  - Spinal osteoarthritis [Unknown]
  - Osteoarthritis [Unknown]
